FAERS Safety Report 6015473-0 (Version None)
Quarter: 2008Q4

REPORT INFORMATION
  Report Type: 
  Country: None (occurrence: None)
  Receive Date: 20081222
  Receipt Date: 20081211
  Transmission Date: 20090506
  Serious: Yes (Other)
  Sender: FDA-Public Use
  Company Number: US-ELI_LILLY_AND_COMPANY-US200812003697

PATIENT
  Age: 45 Year
  Sex: Female
  Weight: 98.866 kg

DRUGS (6)
  1. BYETTA [Suspect]
     Dosage: 10 UG, UNKNOWN
     Dates: start: 20061001, end: 20080901
  2. LEVEMIR [Concomitant]
     Dosage: UNK, UNKNOWN
  3. PRANDIN /USA/ [Concomitant]
     Dosage: 4 MG, 3/D
  4. ALTACE [Concomitant]
     Dosage: UNK, UNKNOWN
  5. SYNTHROID [Concomitant]
     Dosage: UNK, UNKNOWN
  6. AVAPRO [Concomitant]
     Dosage: UNK, UNKNOWN

REACTIONS (2)
  - PANCREATITIS [None]
  - URINARY TRACT INFECTION [None]
